FAERS Safety Report 19283326 (Version 1)
Quarter: 2021Q2

REPORT INFORMATION
  Report Type: Other
  Country: US (occurrence: US)
  Receive Date: 20210520
  Receipt Date: 20210520
  Transmission Date: 20210717
  Serious: Yes (Hospitalization, Other)
  Sender: FDA-Public Use
  Company Number: US-C B FLEET CO INC-202105-US-001637

PATIENT
  Age: 72 Year
  Sex: Female

DRUGS (1)
  1. ASPIRIN. [Suspect]
     Active Substance: ASPIRIN
     Indication: ARTHRALGIA
     Dosage: ONE
     Route: 048

REACTIONS (2)
  - Spinal epidural haematoma [Recovering/Resolving]
  - Incorrect product administration duration [None]
